FAERS Safety Report 5775183-1 (Version None)
Quarter: 2008Q2

REPORT INFORMATION
  Report Type: 
  Country: None (occurrence: None)
  Receive Date: 20080616
  Receipt Date: 20080616
  Transmission Date: 20081010
  Serious: Yes (Death)
  Sender: FDA-Public Use
  Company Number: None

PATIENT
  Age: 51 Year
  Sex: Female
  Weight: 65.7716 kg

DRUGS (1)
  1. ESTRADIOL VALERATE [Suspect]
     Indication: HORMONE THERAPY
     Dosage: 1/4 CC ONCE A MONTH IM
     Route: 030
     Dates: start: 19961101, end: 20040406

REACTIONS (5)
  - CONDITION AGGRAVATED [None]
  - DEATH OF RELATIVE [None]
  - HEADACHE [None]
  - LOSS OF CONSCIOUSNESS [None]
  - MIGRAINE [None]
